FAERS Safety Report 18577080 (Version 1)
Quarter: 2020Q4

REPORT INFORMATION
  Report Type: Spontaneous
  Country: US (occurrence: MX)
  Receive Date: 20201203
  Receipt Date: 20201203
  Transmission Date: 20210114
  Serious: Yes (Other)
  Sender: FDA-Public Use
  Company Number: MX-BIOMARINAP-MX-2020-133632

PATIENT
  Age: 9 Year

DRUGS (2)
  1. ALDURAZYME [Suspect]
     Active Substance: LARONIDASE
     Indication: MUCOPOLYSACCHARIDOSIS I
     Dosage: 150 MILLILITER
     Route: 042
     Dates: start: 2013
  2. RISPERIDONE. [Concomitant]
     Active Substance: RISPERIDONE
     Indication: PRODUCT USED FOR UNKNOWN INDICATION

REACTIONS (13)
  - Snoring [Unknown]
  - Hernia [Unknown]
  - Dermatitis allergic [Recovered/Resolved]
  - Hypoacusis [Unknown]
  - Catheter placement [Unknown]
  - Aggression [Unknown]
  - Spleen disorder [Unknown]
  - Anxiety [Unknown]
  - Liver disorder [Unknown]
  - Aphonia [Unknown]
  - Gait disturbance [Unknown]
  - Cardiac disorder [Unknown]
  - Hypersensitivity [Recovered/Resolved]

NARRATIVE: CASE EVENT DATE: 2018
